FAERS Safety Report 9753143 (Version 1)
Quarter: 2013Q4

REPORT INFORMATION
  Report Type: Spontaneous
  Country: US (occurrence: US)
  Receive Date: 20131213
  Receipt Date: 20131213
  Transmission Date: 20140711
  Serious: No
  Sender: FDA-Public Use
  Company Number: US-GILEAD-2010-0026490

PATIENT
  Sex: Female
  Weight: 47.17 kg

DRUGS (5)
  1. LETAIRIS [Suspect]
     Indication: PULMONARY ARTERIAL HYPERTENSION
     Route: 048
     Dates: start: 20081219
  2. INDERAL [Concomitant]
  3. AMLODIPINE BESYLATE [Concomitant]
  4. LUNESTA [Concomitant]
  5. ASPIRIN [Concomitant]

REACTIONS (1)
  - Dementia [Unknown]
